FAERS Safety Report 17291923 (Version 1)
Quarter: 2020Q1

REPORT INFORMATION
  Report Type: Spontaneous
  Country: CN (occurrence: CN)
  Receive Date: 20200121
  Receipt Date: 20200121
  Transmission Date: 20200409
  Serious: Yes (Other)
  Sender: FDA-Public Use
  Company Number: CN-BAYER-2019-218450

PATIENT
  Age: 40 Year
  Sex: Male
  Weight: 54 kg

DRUGS (2)
  1. ULTRAVIST [Suspect]
     Active Substance: IOPROMIDE
     Indication: SCAN WITH CONTRAST
  2. ULTRAVIST [Suspect]
     Active Substance: IOPROMIDE
     Indication: CHEST SCAN
     Dosage: 80 ML, ONCE
     Route: 042
     Dates: start: 20191121, end: 20191121

REACTIONS (1)
  - Rash erythematous [Recovered/Resolved]

NARRATIVE: CASE EVENT DATE: 20191121
